FAERS Safety Report 8354236-8 (Version None)
Quarter: 2012Q2

REPORT INFORMATION
  Report Type: 
  Country: None (occurrence: None)
  Receive Date: 20120511
  Receipt Date: 20120423
  Transmission Date: 20120825
  Serious: Yes (Other)
  Sender: FDA-Public Use
  Company Number: FR-JNJFOC-20120508149

PATIENT
  Age: 55 Year
  Sex: Male

DRUGS (15)
  1. OXYCODONE HCL [Suspect]
     Indication: PRODUCT USED FOR UNKNOWN INDICATION
     Route: 065
  2. ONDANSETRON [Concomitant]
     Route: 065
  3. POLYETHYLENE GLYCOL [Concomitant]
     Route: 065
  4. LEUCOVORIN CALCIUM [Concomitant]
     Route: 065
  5. LEUCOVORIN CALCIUM [Concomitant]
     Route: 065
  6. METOCLOPRAMIDE [Suspect]
     Indication: PRODUCT USED FOR UNKNOWN INDICATION
     Route: 065
  7. ZOLPIDEM [Concomitant]
     Route: 065
  8. FLUOROURACIL [Concomitant]
     Route: 065
  9. OXALIPLATIN [Concomitant]
     Route: 065
  10. CETIRIZINE HYDROCHLORIDE [Suspect]
     Route: 065
  11. CETIRIZINE HYDROCHLORIDE [Suspect]
     Indication: PRODUCT USED FOR UNKNOWN INDICATION
     Route: 065
  12. ONDANSETRON [Concomitant]
     Route: 065
  13. MASITINIB (CHEMOTHERAPY) [Suspect]
     Indication: PRODUCT USED FOR UNKNOWN INDICATION
     Route: 048
  14. OXYCODONE HCL [Suspect]
     Route: 065
  15. FLUOROURACIL [Concomitant]
     Route: 065

REACTIONS (1)
  - STEVENS-JOHNSON SYNDROME [None]
